FAERS Safety Report 8621628 (Version 5)
Quarter: 2013Q2

REPORT INFORMATION
  Report Type: Report from Study
  Country: JP (occurrence: JP)
  Receive Date: 20120619
  Receipt Date: 20130425
  Transmission Date: 20140414
  Serious: Yes (Life-Threatening, Hospitalization)
  Sender: FDA-Public Use
  Company Number: JP-NOVOPROD-353765

PATIENT
  Age: 65 Year
  Sex: Male
  Weight: 62.4 kg

DRUGS (2)
  1. LIRAGLUTIDE FLEXPEN [Suspect]
     Indication: TYPE 2 DIABETES MELLITUS
     Dosage: 0.9 MG, QD
     Route: 058
     Dates: start: 20120228, end: 20120613
  2. URIEF [Concomitant]
     Dosage: 8 MG, UNK

REACTIONS (1)
  - Prostate cancer stage II [Not Recovered/Not Resolved]
